FAERS Safety Report 14229797 (Version 1)
Quarter: 2017Q4

REPORT INFORMATION
  Report Type: Spontaneous
  Country: US (occurrence: None)
  Receive Date: 20171127
  Receipt Date: 20171127
  Transmission Date: 20180321
  Serious: No
  Sender: FDA-Public Use
  Company Number: None

PATIENT
  Age: 48 Year
  Sex: Female

DRUGS (1)
  1. GLATIRAMER 40MG PFS INJ (12/BOX) [Suspect]
     Active Substance: GLATIRAMER

REACTIONS (5)
  - Pruritus [None]
  - Product substitution issue [None]
  - Pain [None]
  - Headache [None]
  - Injection site mass [None]

NARRATIVE: CASE EVENT DATE: 20171125
